FAERS Safety Report 13867232 (Version 1)
Quarter: 2017Q3

REPORT INFORMATION
  Report Type: Spontaneous
  Country: US (occurrence: US)
  Receive Date: 20170814
  Receipt Date: 20170814
  Transmission Date: 20171127
  Serious: Yes (Other)
  Sender: FDA-Public Use
  Company Number: US-ELI_LILLY_AND_COMPANY-US201708002668

PATIENT
  Age: 66 Year
  Sex: Female

DRUGS (2)
  1. HUMULIN R [Suspect]
     Active Substance: INSULIN HUMAN
     Indication: TYPE 2 DIABETES MELLITUS
     Dosage: 37 U, DAILY
     Route: 058
     Dates: start: 20150803
  2. HUMULIN R [Suspect]
     Active Substance: INSULIN HUMAN
     Dosage: 37 U, TID
     Route: 058

REACTIONS (3)
  - Chronic obstructive pulmonary disease [Unknown]
  - Blood glucose increased [Unknown]
  - Drug ineffective [Unknown]

NARRATIVE: CASE EVENT DATE: 201702
